FAERS Safety Report 6398677-7 (Version None)
Quarter: 2009Q4

REPORT INFORMATION
  Report Type: 
  Country: None (occurrence: None)
  Receive Date: 20091013
  Receipt Date: 20091007
  Transmission Date: 20100525
  Serious: Yes (Hospitalization)
  Sender: FDA-Public Use
  Company Number: JP-WYE-H11489209

PATIENT
  Age: 70 Year
  Sex: Male

DRUGS (2)
  1. MYLOTARG [Suspect]
     Indication: ACUTE MYELOID LEUKAEMIA
     Route: 041
     Dates: start: 20090530, end: 20090530
  2. MYLOTARG [Suspect]
     Route: 041
     Dates: start: 20090601, end: 20090601

REACTIONS (1)
  - VENOOCCLUSIVE LIVER DISEASE [None]
